FAERS Safety Report 7670761-7 (Version None)
Quarter: 2011Q3

REPORT INFORMATION
  Report Type: 
  Country: None (occurrence: None)
  Receive Date: 20110803
  Receipt Date: 20110720
  Transmission Date: 20111222
  Serious: Yes (Hospitalization)
  Sender: FDA-Public Use
  Company Number: TPA2011A03568

PATIENT
  Age: 60 Year
  Sex: Male
  Weight: 163.7485 kg

DRUGS (3)
  1. UNSPECIFIED HORMONE SHOT (HORMONES NOS) [Suspect]
     Indication: PROSTATE CANCER
  2. ACTOS [Suspect]
     Indication: TYPE 2 DIABETES MELLITUS
     Dosage: 30 MG, 1 IN 1 D, ORAL; 45 MG, 1 IN 1 D, PER ORAL
     Route: 048
     Dates: start: 20070101, end: 20091101
  3. ACTOS [Suspect]
     Indication: TYPE 2 DIABETES MELLITUS
     Dosage: 30 MG, 1 IN 1 D, ORAL; 45 MG, 1 IN 1 D, PER ORAL
     Route: 048
     Dates: start: 20091101

REACTIONS (3)
  - DEPRESSION [None]
  - BLOOD GLUCOSE INCREASED [None]
  - PROSTATE CANCER [None]
